FAERS Safety Report 23311855 (Version 1)
Quarter: 2023Q4

REPORT INFORMATION
  Report Type: Spontaneous
  Country: US (occurrence: None)
  Receive Date: 20231218
  Receipt Date: 20231218
  Transmission Date: 20240110
  Serious: Yes (Other)
  Sender: FDA-Public Use
  Company Number: None

PATIENT
  Age: 82 Year
  Sex: Male
  Weight: 60.75 kg

DRUGS (1)
  1. SALONPAS PAIN RELIEVING LIDOCAINE 4% FLEX [Suspect]
     Active Substance: LIDOCAINE
     Indication: Pain
     Dosage: OTHER QUANTITY : 1 PATCH(ES);?FREQUENCY : AT BEDTIME;?
     Route: 062
     Dates: start: 20231206, end: 20231218

REACTIONS (2)
  - Balance disorder [None]
  - Product quality issue [None]

NARRATIVE: CASE EVENT DATE: 20231218
